FAERS Safety Report 23969814 (Version 1)
Quarter: 2024Q2

REPORT INFORMATION
  Report Type: Spontaneous
  Country: GB (occurrence: GB)
  Receive Date: 20240613
  Receipt Date: 20240613
  Transmission Date: 20240716
  Serious: Yes (Life-Threatening, Hospitalization, Other)
  Sender: FDA-Public Use
  Company Number: None

PATIENT
  Sex: Female

DRUGS (5)
  1. HYDROCORTISONE [Suspect]
     Active Substance: HYDROCORTISONE\HYDROCORTISONE ACETATE
     Indication: Product used for unknown indication
     Dates: start: 19961106
  2. CLOBETASONE [Suspect]
     Active Substance: CLOBETASONE
     Indication: Product used for unknown indication
  3. EUMOVATE [Suspect]
     Active Substance: CLOBETASONE BUTYRATE
     Indication: Product used for unknown indication
  4. FUSIDIC ACID\HYDROCORTISONE ACETATE [Suspect]
     Active Substance: FUSIDIC ACID\HYDROCORTISONE ACETATE
     Indication: Product used for unknown indication
  5. BETNOVATE [Suspect]
     Active Substance: BETAMETHASONE
     Indication: Product used for unknown indication

REACTIONS (10)
  - Dry skin [Not Recovered/Not Resolved]
  - Pain of skin [Not Recovered/Not Resolved]
  - Erythema [Not Recovered/Not Resolved]
  - Insomnia [Recovered/Resolved with Sequelae]
  - Depression [Not Recovered/Not Resolved]
  - Rash [Not Recovered/Not Resolved]
  - Skin erosion [Recovering/Resolving]
  - Neuralgia [Recovered/Resolved]
  - Medication error [Unknown]
  - Alopecia [Recovered/Resolved with Sequelae]
